FAERS Safety Report 8440415-8 (Version None)
Quarter: 2012Q2

REPORT INFORMATION
  Report Type: 
  Country: None (occurrence: None)
  Receive Date: 20120615
  Receipt Date: 20120605
  Transmission Date: 20120825
  Serious: Yes (Hospitalization, Other)
  Sender: FDA-Public Use
  Company Number: US-BAYER-2012-053516

PATIENT
  Age: 30 Year
  Sex: Female
  Weight: 57.143 kg

DRUGS (10)
  1. YAZ [Suspect]
     Indication: CONTRACEPTION
     Dosage: UNK
     Dates: start: 20070920, end: 20090901
  2. ALBUTEROL [Concomitant]
     Indication: CHEST DISCOMFORT
     Route: 045
  3. CHERATUSSIN AC [Concomitant]
     Dosage: UNK
     Route: 048
     Dates: start: 20090826
  4. HYDROCODONE [Concomitant]
     Dosage: 5 MG, UNK
  5. YAZ [Suspect]
     Indication: ACNE
  6. ALBUTEROL [Concomitant]
     Indication: COUGH
  7. ANTIHISTAMINES [Concomitant]
     Indication: MULTIPLE ALLERGIES
  8. LEVAQUIN [Concomitant]
     Dosage: 750 MG, QD
     Route: 048
     Dates: start: 20090901
  9. MULTI-VITAMIN [Concomitant]
     Indication: SUPPLEMENTATION THERAPY
  10. ACETAMINOPHEN [Concomitant]
     Dosage: 500 MG, UNK

REACTIONS (9)
  - PAIN IN EXTREMITY [None]
  - PAIN [None]
  - INJURY [None]
  - PULMONARY EMBOLISM [None]
  - PNEUMONIA [None]
  - DEEP VEIN THROMBOSIS [None]
  - HEPATIC LESION [None]
  - OEDEMA PERIPHERAL [None]
  - CHEST PAIN [None]
